FAERS Safety Report 4751250-6 (Version None)
Quarter: 2005Q3

REPORT INFORMATION
  Report Type: 
  Country: None (occurrence: None)
  Receive Date: 20050822
  Receipt Date: 20050808
  Transmission Date: 20060218
  Serious: Yes (Other)
  Sender: FDA-Public Use
  Company Number: US-2005-013601

PATIENT
  Age: 47 Year
  Sex: Male
  Weight: 72.6 kg

DRUGS (3)
  1. BETASERON [Suspect]
     Indication: MULTIPLE SCLEROSIS
     Dosage: 6 MIU, EVERY 2D, SUBCUTANEOUS
     Route: 058
     Dates: start: 20050303, end: 20050712
  2. LEXAPRO [Concomitant]
  3. TYLENOL [Concomitant]

REACTIONS (8)
  - DEVICE FAILURE [None]
  - DIZZINESS [None]
  - FOREIGN BODY TRAUMA [None]
  - INJECTION SITE INDURATION [None]
  - INJECTION SITE MASS [None]
  - INJECTION SITE PAIN [None]
  - INJECTION SITE WARMTH [None]
  - NAUSEA [None]
